FAERS Safety Report 9363753 (Version 1)
Quarter: 2013Q2

REPORT INFORMATION
  Report Type: Spontaneous
  Country: IT (occurrence: IT)
  Receive Date: 20130624
  Receipt Date: 20130624
  Transmission Date: 20140414
  Serious: Yes (Death, Life-Threatening, Hospitalization, Disabling, Other)
  Sender: FDA-Public Use
  Company Number: IT-JNJFOC-20130609254

PATIENT
  Sex: 0

DRUGS (1)
  1. INFLIXIMAB, RECOMBINANT [Suspect]
     Indication: RHEUMATOID ARTHRITIS
     Route: 042

REACTIONS (12)
  - Death [Fatal]
  - Arthritis infective [Unknown]
  - Urinary tract infection [Unknown]
  - Soft tissue infection [Unknown]
  - Lower respiratory tract infection [Unknown]
  - Abdominal infection [Unknown]
  - Bacterial infection [Unknown]
  - Viral infection [Unknown]
  - Mycobacterial infection [Unknown]
  - Fungal infection [Unknown]
  - Infection [Unknown]
  - Drug ineffective [Unknown]
